FAERS Safety Report 24949447 (Version 2)
Quarter: 2025Q3

REPORT INFORMATION
  Report Type: Report from Study
  Country: US (occurrence: US)
  Receive Date: 20250210
  Receipt Date: 20250704
  Transmission Date: 20251020
  Serious: Yes (Other)
  Sender: BEIGENE
  Company Number: US-BEIGENE-BGN-2024-013203

PATIENT
  Age: 82 Year
  Weight: 82.54 kg

DRUGS (4)
  1. BRUKINSA [Suspect]
     Active Substance: ZANUBRUTINIB
     Indication: Waldenstrom^s macroglobulinaemia
     Dosage: 160 MILLIGRAM, BID
  2. BRUKINSA [Suspect]
     Active Substance: ZANUBRUTINIB
     Dosage: 160 MILLIGRAM, BID
  3. BRUKINSA [Suspect]
     Active Substance: ZANUBRUTINIB
     Dosage: 160 MILLIGRAM BID
  4. BRUKINSA [Suspect]
     Active Substance: ZANUBRUTINIB
     Dosage: 160 MILLIGRAM BID

REACTIONS (8)
  - Scrotal haemorrhage [Unknown]
  - Back pain [Recovered/Resolved]
  - Gait disturbance [Unknown]
  - Constipation [Unknown]
  - Excessive cerumen production [Unknown]
  - Cerumen removal [Unknown]
  - Ear haemorrhage [Unknown]
  - Haematospermia [Unknown]
